FAERS Safety Report 19643933 (Version 6)
Quarter: 2021Q4

REPORT INFORMATION
  Report Type: Report from Study
  Country: FR (occurrence: None)
  Receive Date: 20210730
  Receipt Date: 20211229
  Transmission Date: 20220303
  Serious: Yes (Death, Hospitalization)
  Sender: FDA-Public Use
  Company Number: FR-ROCHE-2880499

PATIENT
  Age: 61 Year
  Sex: Male
  Weight: 80 kg

DRUGS (19)
  1. OCRELIZUMAB [Suspect]
     Active Substance: OCRELIZUMAB
     Indication: Primary progressive multiple sclerosis
     Dosage: NEXT INFUSION ON  18/OCT/2012, 25/MAR/2013, 08/APR/2013, 05/SEP/2013, 19/SEP/2013, 24/FEB/2014, 10/M
     Route: 042
     Dates: start: 20121004, end: 20160103
  2. OCRELIZUMAB [Suspect]
     Active Substance: OCRELIZUMAB
     Indication: Primary progressive multiple sclerosis
     Dosage: NEXT INFUSION ON  18/JAN/2016, 23/JUN/2016, 04/JUL/2016, 05/DEC/2016, 01/JUN/2017, 09/NOV/2017, 18/A
     Route: 042
     Dates: start: 20160104
  3. CETIRIZINE [Concomitant]
     Active Substance: CETIRIZINE HYDROCHLORIDE
     Dosage: NEXT INFUSION ON   25/MAR/2013, 08/APR/2013, 05/SEP/2013, 19/SEP/2013, 24/FEB/2014, 10/MAR/2014, 07/
     Dates: start: 20121018
  4. METHYLPREDNISOLONE [Concomitant]
     Active Substance: METHYLPREDNISOLONE
     Dosage: NEXT INFUSION ON  18/OCT/2012, 25/MAR/2013, 08/APR/2013, 05/SEP/2013, 19/SEP/2013, 24/FEB/2014, 10/M
     Dates: start: 20121004
  5. ACETAMINOPHEN [Concomitant]
     Active Substance: ACETAMINOPHEN
     Dosage: NEXT INFUSION ON  18/OCT/2012, 25/MAR/2013, 08/APR/2013, 05/SEP/2013, 19/SEP/2013, 24/FEB/2014, 10/M
     Dates: start: 20121004
  6. POLARAMINE [Concomitant]
     Active Substance: DEXCHLORPHENIRAMINE MALEATE
     Dosage: NEXT INFUSION ON  18/OCT/2012, 25/MAR/2013, 08/APR/2013, 05/SEP/2013, 19/SEP/2013, 24/FEB/2014, 10/M
     Dates: start: 20121004, end: 20121004
  7. DOLIPRANE [Concomitant]
     Active Substance: ACETAMINOPHEN
     Indication: Bronchitis
     Dates: start: 20200227
  8. DOLIPRANE [Concomitant]
     Active Substance: ACETAMINOPHEN
     Dates: start: 20121030, end: 20121107
  9. POTASSIUM BITARTRATE\SODIUM BICARBONATE [Concomitant]
     Active Substance: POTASSIUM BITARTRATE\SODIUM BICARBONATE
     Indication: Constipation
     Dosage: 1
     Dates: start: 20161110
  10. POLYETHYLENE GLYCOL 4000 [Concomitant]
     Active Substance: POLYETHYLENE GLYCOL 4000
     Indication: Constipation
     Dates: start: 20210311, end: 20210318
  11. AMITRIPTYLINE HYDROCHLORIDE [Concomitant]
     Active Substance: AMITRIPTYLINE HYDROCHLORIDE
     Dates: start: 20121227
  12. OMEPRAZOLE [Concomitant]
     Active Substance: OMEPRAZOLE
     Indication: Decreased appetite
     Dates: start: 20170602
  13. OMEPRAZOLE [Concomitant]
     Active Substance: OMEPRAZOLE
     Dates: start: 20170511, end: 20170601
  14. SPAGULAX [Concomitant]
     Active Substance: HERBALS\PLANTAGO OVATA SEED
     Indication: Constipation
     Dates: start: 20161110
  15. VESICARE [Concomitant]
     Active Substance: SOLIFENACIN SUCCINATE
     Indication: Incontinence
     Dates: start: 20170511, end: 20190109
  16. VESICARE [Concomitant]
     Active Substance: SOLIFENACIN SUCCINATE
     Dates: start: 20190110
  17. ACETAMINOPHEN\CODEINE PHOSPHATE [Concomitant]
     Active Substance: ACETAMINOPHEN\CODEINE PHOSPHATE
     Indication: Headache
     Dates: start: 20130522
  18. CEFTRIAXONE [Concomitant]
     Active Substance: CEFTRIAXONE
     Dates: start: 20210720, end: 202107
  19. AUGMENTIN [Concomitant]
     Active Substance: AMOXICILLIN\CLAVULANATE POTASSIUM
     Dates: start: 202107

REACTIONS (1)
  - Hepatic neoplasm [Fatal]

NARRATIVE: CASE EVENT DATE: 20210719
